FAERS Safety Report 6064341-7 (Version None)
Quarter: 2009Q1

REPORT INFORMATION
  Report Type: 
  Country: None (occurrence: None)
  Receive Date: 20090204
  Receipt Date: 20090129
  Transmission Date: 20090719
  Serious: Yes (Hospitalization)
  Sender: FDA-Public Use
  Company Number: US-ASTRAZENECA-2009AC00488

PATIENT
  Age: 80 Year
  Sex: Female
  Weight: 54.9 kg

DRUGS (7)
  1. ATENOLOL [Suspect]
  2. LISINOPRIL [Suspect]
  3. FELODIPINE [Suspect]
  4. CLONIDINE HCL [Suspect]
  5. NIFEDIPINE [Suspect]
  6. METHIMAZOLE [Concomitant]
     Indication: HYPOTHYROIDISM
  7. ALENDRONATE SODIUM [Concomitant]
     Indication: OSTEOPOROSIS

REACTIONS (6)
  - BALANCE DISORDER [None]
  - BRADYCARDIA [None]
  - COUGH [None]
  - DIZZINESS [None]
  - DRY MOUTH [None]
  - OEDEMA PERIPHERAL [None]
